FAERS Safety Report 19931928 (Version 1)
Quarter: 2021Q4

REPORT INFORMATION
  Report Type: Spontaneous
  Country: US (occurrence: US)
  Receive Date: 20211006
  Receipt Date: 20211006
  Transmission Date: 20220303
  Serious: No
  Sender: FDA-Public Use
  Company Number: None

PATIENT
  Age: 68 Year
  Sex: Male

DRUGS (1)
  1. CAPECITABINE [Suspect]
     Active Substance: CAPECITABINE
     Dosage: OTHER DOSE:2000MG AM/1500MGPM;
     Route: 048
     Dates: start: 202108

REACTIONS (2)
  - Full blood count decreased [None]
  - Pneumonia [None]

NARRATIVE: CASE EVENT DATE: 20210915
